FAERS Safety Report 13535718 (Version 1)
Quarter: 2017Q2

REPORT INFORMATION
  Report Type: Spontaneous
  Country: US (occurrence: US)
  Receive Date: 20170511
  Receipt Date: 20170511
  Transmission Date: 20170830
  Serious: Yes (Hospitalization, Other)
  Sender: FDA-Public Use
  Company Number: US-WEST-WARD PHARMACEUTICALS CORP.-US-H14001-17-01412

PATIENT
  Age: 18 Year
  Sex: Female

DRUGS (8)
  1. ASP2215 [Suspect]
     Active Substance: GILTERITINIB
     Indication: ACUTE MYELOID LEUKAEMIA RECURRENT
     Route: 048
     Dates: start: 20161116, end: 20170318
  2. ASP2215 [Suspect]
     Active Substance: GILTERITINIB
     Route: 048
     Dates: start: 20170319
  3. ARA-C [Suspect]
     Active Substance: CYTARABINE
     Indication: ENCEPHALITIS
     Route: 037
     Dates: start: 20170316
  4. ENALAPRIL [Concomitant]
     Active Substance: ENALAPRIL
     Indication: PRODUCT USED FOR UNKNOWN INDICATION
     Route: 065
  5. NIFEDIPINE. [Concomitant]
     Active Substance: NIFEDIPINE
     Indication: PRODUCT USED FOR UNKNOWN INDICATION
     Route: 065
  6. DEXAMETHASONE. [Suspect]
     Active Substance: DEXAMETHASONE
     Indication: NERVOUS SYSTEM DISORDER
     Route: 048
     Dates: start: 20170316, end: 20170317
  7. CEFEPIME [Concomitant]
     Active Substance: CEFEPIME HYDROCHLORIDE
     Indication: PRODUCT USED FOR UNKNOWN INDICATION
     Route: 065
     Dates: start: 20170313, end: 20170319
  8. ENALAPRIL [Concomitant]
     Active Substance: ENALAPRIL
     Route: 065

REACTIONS (5)
  - Posterior reversible encephalopathy syndrome [Unknown]
  - Hypertension [Recovered/Resolved]
  - Headache [Unknown]
  - Seizure [Recovered/Resolved]
  - Cerebral vasoconstriction [Unknown]

NARRATIVE: CASE EVENT DATE: 20170317
